FAERS Safety Report 21423476 (Version 1)
Quarter: 2022Q4

REPORT INFORMATION
  Report Type: Spontaneous
  Country: US (occurrence: None)
  Receive Date: 20221006
  Receipt Date: 20221006
  Transmission Date: 20230112
  Serious: No
  Sender: FDA-Public Use
  Company Number: None

PATIENT
  Age: 81 Year
  Sex: Male

DRUGS (14)
  1. ABIRATERONE [Suspect]
     Active Substance: ABIRATERONE
     Dosage: FREQUENCY : DAILY;?
     Route: 048
     Dates: start: 202209, end: 20221006
  2. BELBUCA [Concomitant]
     Active Substance: BUPRENORPHINE HYDROCHLORIDE
  3. MINERALS\VITAMINS [Concomitant]
     Active Substance: MINERALS\VITAMINS
  4. ELIGARD [Concomitant]
     Active Substance: LEUPROLIDE ACETATE
  5. FLONASE [Concomitant]
     Active Substance: FLUTICASONE PROPIONATE
  6. GABAPENTIN [Concomitant]
     Active Substance: GABAPENTIN
  7. NARCAN [Concomitant]
     Active Substance: NALOXONE HYDROCHLORIDE
  8. ONDANSETRON [Concomitant]
     Active Substance: ONDANSETRON
  9. OXYCODONE [Concomitant]
     Active Substance: OXYCODONE
  10. PREDNISONE [Concomitant]
     Active Substance: PREDNISONE
  11. SENIOR TABS [Concomitant]
  12. SENNOSIDES [Concomitant]
     Active Substance: SENNOSIDES
  13. SYMPROIC [Concomitant]
     Active Substance: NALDEMEDINE
  14. XGEVA [Concomitant]
     Active Substance: DENOSUMAB

REACTIONS (1)
  - Hospice care [None]
